FAERS Safety Report 8194245-5 (Version None)
Quarter: 2012Q1

REPORT INFORMATION
  Report Type: 
  Country: None (occurrence: None)
  Receive Date: 20120308
  Receipt Date: 20120302
  Transmission Date: 20120608
  Serious: Yes (Other)
  Sender: FDA-Public Use
  Company Number: US-PERRIGO-12US000787

PATIENT
  Sex: Female
  Weight: 14.059 kg

DRUGS (1)
  1. LOPERAMIDE HYDROCHLORIDE [Suspect]
     Indication: ACCIDENTAL DRUG INTAKE BY CHILD
     Dosage: 6 MG, SINGLE
     Route: 048
     Dates: start: 20120130, end: 20120130

REACTIONS (1)
  - ACCIDENTAL DRUG INTAKE BY CHILD [None]
